FAERS Safety Report 21359512 (Version 1)
Quarter: 2022Q3

REPORT INFORMATION
  Report Type: Spontaneous
  Country: HR (occurrence: HR)
  Receive Date: 20220921
  Receipt Date: 20220921
  Transmission Date: 20221026
  Serious: Yes (Other)
  Sender: FDA-Public Use
  Company Number: None

PATIENT
  Sex: Female

DRUGS (2)
  1. ZOLPIDEM TARTRATE [Suspect]
     Active Substance: ZOLPIDEM TARTRATE
     Indication: Product used for unknown indication
     Dosage: 100 MG, QD (10 TBL X 10 MG)
     Route: 048
     Dates: start: 20220721, end: 20220721
  2. ALPRAZOLAM [Suspect]
     Active Substance: ALPRAZOLAM
     Indication: Product used for unknown indication
     Dosage: 7.5 MG, QD (15 TBL. X 0.5 MG)
     Route: 048
     Dates: start: 20220721, end: 20220721

REACTIONS (3)
  - Somnolence [Unknown]
  - Suicide attempt [Unknown]
  - Intentional overdose [Unknown]

NARRATIVE: CASE EVENT DATE: 20220721
